FAERS Safety Report 8368885-4 (Version None)
Quarter: 2012Q2

REPORT INFORMATION
  Report Type: 
  Country: None (occurrence: None)
  Receive Date: 20120516
  Receipt Date: 20120504
  Transmission Date: 20120825
  Serious: Yes (Life-Threatening, Hospitalization)
  Sender: FDA-Public Use
  Company Number: PT-008085

PATIENT
  Age: 78 Year
  Sex: Male

DRUGS (11)
  1. LISINOPRIL [Concomitant]
  2. BICALUTAMIDE [Concomitant]
  3. ESTRAMUSTINE PHOSPHATE SODIUM [Concomitant]
  4. CALCITRIOL [Concomitant]
  5. FIRMAGON [Suspect]
     Indication: PROSTATE CANCER METASTATIC
     Dosage: 240 MG QD SUBCUTANEOUS, 80 MG 1X/MONTH SUBCUTANEOUS
     Route: 058
     Dates: start: 20120305, end: 20120305
  6. DARBEPOETIN ALFA [Concomitant]
  7. BISOPROLOL FUMARATE [Concomitant]
  8. ESOMEPRAZOLE MAGNESIUM [Concomitant]
  9. ALLOPURINOL [Concomitant]
  10. CALCIUM CARBONATE [Concomitant]
  11. ASPIRIN [Concomitant]

REACTIONS (7)
  - PYREXIA [None]
  - THROMBOCYTOPENIA [None]
  - NEUTROPENIA [None]
  - METASTASES TO BONE [None]
  - PUNCTURE SITE HAEMORRHAGE [None]
  - HEPATIC NECROSIS [None]
  - DEVICE RELATED INFECTION [None]
